FAERS Safety Report 8634882 (Version 3)
Quarter: 2014Q2

REPORT INFORMATION
  Report Type: Report from Study
  Country: US (occurrence: US)
  Receive Date: 20120626
  Receipt Date: 20131018
  Transmission Date: 20141212
  Serious: Yes (Death)
  Sender: FDA-Public Use
  Company Number: US-PFIZER INC-2012148585

PATIENT
  Age: 41 Year
  Sex: Female

DRUGS (4)
  1. MORPHINE SULFATE [Suspect]
     Dosage: UNK
  2. KEPPRA [Concomitant]
  3. GABAPENTIN [Concomitant]
     Dosage: UNK
  4. VALPROIC ACID [Concomitant]
     Dosage: UNK

REACTIONS (1)
  - Accidental poisoning [Fatal]
